FAERS Safety Report 13033221 (Version 4)
Quarter: 2017Q2

REPORT INFORMATION
  Report Type: Spontaneous
  Country: IT (occurrence: IT)
  Receive Date: 20161216
  Receipt Date: 20170405
  Transmission Date: 20170830
  Serious: Yes (Death)
  Sender: FDA-Public Use
  Company Number: IT-ROCHE-1867925

PATIENT
  Age: 26 Year
  Sex: Female

DRUGS (1)
  1. ROCEFIN [Suspect]
     Active Substance: CEFTRIAXONE SODIUM
     Indication: PRODUCT USED FOR UNKNOWN INDICATION
     Route: 065
     Dates: start: 20140713

REACTIONS (1)
  - Haemorrhage [Fatal]
